FAERS Safety Report 14669940 (Version 1)
Quarter: 2018Q1

REPORT INFORMATION
  Report Type: Spontaneous
  Country: US (occurrence: US)
  Receive Date: 20180322
  Receipt Date: 20180322
  Transmission Date: 20180509
  Serious: No
  Sender: FDA-Public Use
  Company Number: US-GLAXOSMITHKLINE-US2018GSK048766

PATIENT
  Sex: Male

DRUGS (22)
  1. TIZANIDINE. [Concomitant]
     Active Substance: TIZANIDINE
  2. IPRATROPIUM BROMIDE NASAL SPRAY [Concomitant]
     Active Substance: IPRATROPIUM BROMIDE
  3. SOOTHE XP EYE DROPS [Concomitant]
  4. THERATEARS [Concomitant]
     Active Substance: CARBOXYMETHYLCELLULOSE SODIUM
  5. AMITIZA [Concomitant]
     Active Substance: LUBIPROSTONE
  6. AZELASTINE. [Concomitant]
     Active Substance: AZELASTINE HYDROCHLORIDE
  7. VITAMIN B12 [Concomitant]
     Active Substance: CYANOCOBALAMIN
  8. BREO ELLIPTA [Suspect]
     Active Substance: FLUTICASONE FUROATE\VILANTEROL TRIFENATATE
     Indication: CHRONIC OBSTRUCTIVE PULMONARY DISEASE
     Dosage: UNK
     Dates: start: 201712
  9. MODAFINIL. [Concomitant]
     Active Substance: MODAFINIL
  10. ATORVASTATIN [Concomitant]
     Active Substance: ATORVASTATIN
  11. FISH OIL [Concomitant]
     Active Substance: FISH OIL
  12. ULTRA COQ10 [Concomitant]
  13. OXYCODONE + APAP [Concomitant]
  14. DULOXETINE. [Concomitant]
     Active Substance: DULOXETINE
  15. ANORO ELLIPTA [Suspect]
     Active Substance: UMECLIDINIUM BROMIDE\VILANTEROL TRIFENATATE
     Indication: CHRONIC OBSTRUCTIVE PULMONARY DISEASE
     Dosage: 1 PUFF(S), QD
     Route: 055
  16. PATADAY [Concomitant]
     Active Substance: OLOPATADINE HYDROCHLORIDE
  17. PANTOPRAZOLE [Concomitant]
     Active Substance: PANTOPRAZOLE
  18. TAMSULOSIN [Concomitant]
     Active Substance: TAMSULOSIN
  19. FINASTERIDE. [Concomitant]
     Active Substance: FINASTERIDE
  20. POTASSIUM GLUCONATE [Concomitant]
     Active Substance: POTASSIUM GLUCONATE
  21. VITAMIN D3 [Concomitant]
     Active Substance: CHOLECALCIFEROL
     Dosage: 1000 IU, UNK
  22. LOW DOSE ASPIRIN [Concomitant]
     Active Substance: ASPIRIN

REACTIONS (3)
  - Dyspnoea [Unknown]
  - Drug ineffective [Unknown]
  - Product label confusion [Unknown]
